FAERS Safety Report 13397221 (Version 1)
Quarter: 2017Q2

REPORT INFORMATION
  Report Type: Spontaneous
  Country: US (occurrence: US)
  Receive Date: 20170403
  Receipt Date: 20170403
  Transmission Date: 20170830
  Serious: No
  Sender: FDA-Public Use
  Company Number: US-009507513-1703USA013991

PATIENT
  Sex: Female
  Weight: 248 kg

DRUGS (1)
  1. NEXPLANON [Suspect]
     Active Substance: ETONOGESTREL
     Dosage: 68 MG/ 1 ROD, EVERY 3 YEARS
     Route: 059
     Dates: start: 20131120, end: 20170316

REACTIONS (3)
  - Incorrect drug administration duration [Unknown]
  - Device breakage [Recovered/Resolved]
  - Difficulty removing drug implant [Recovered/Resolved]

NARRATIVE: CASE EVENT DATE: 20170316
